FAERS Safety Report 9209081 (Version 1)
Quarter: 2013Q1

REPORT INFORMATION
  Report Type: Spontaneous
  Country: US (occurrence: None)
  Receive Date: 20120820
  Receipt Date: 20120820
  Transmission Date: 20140127
  Serious: No
  Sender: FDA-Public Use
  Company Number: 1000037218

PATIENT
  Age: 74 Year
  Sex: Female

DRUGS (8)
  1. VIIBRYD (VILAZODONE)(10 MILLIGRAM, TABLETS) [Suspect]
     Indication: DEPRESSION
     Route: 048
     Dates: start: 20120212, end: 20120215
  2. PRAVASTATIN (PRAVASTATIN) (PRAVASTATIN) [Concomitant]
  3. LISINOPRIL (LISINOPRIL) (LISINOPRIL) [Concomitant]
  4. ZOLPIDEM (ZOLPIDEM) (ZOLPIDEM) [Concomitant]
  5. ALPRAZOLAM (ALPRAZOLAM) (ALPRAZOLAM) [Concomitant]
  6. OMEPRAZOLE (OMEPRAZOLE) (OMEPRAZOLE) [Concomitant]
  7. FEOSOL (FERROUS SULFATE) (FERROUS SULFATE) [Concomitant]
  8. OMEGA-3 (FISH OIL) (FISH OIL) [Concomitant]

REACTIONS (8)
  - Feeling abnormal [None]
  - Muscle spasms [None]
  - Abdominal pain upper [None]
  - Nightmare [None]
  - Hot flush [None]
  - Dysuria [None]
  - Decreased appetite [None]
  - Abnormal dreams [None]
